FAERS Safety Report 4986633-2 (Version None)
Quarter: 2006Q2

REPORT INFORMATION
  Report Type: 
  Country: None (occurrence: None)
  Receive Date: 20060428
  Receipt Date: 20060419
  Transmission Date: 20061013
  Serious: Yes (Other)
  Sender: FDA-Public Use
  Company Number: PHBS2006SE05664

PATIENT
  Sex: Female

DRUGS (9)
  1. ZOMETA [Suspect]
     Indication: MULTIPLE MYELOMA
     Dosage: UNK, UNK
     Route: 065
     Dates: start: 20030416
  2. DIOVAN [Concomitant]
     Route: 065
  3. INSULIN [Concomitant]
     Route: 065
  4. METFORMIN [Concomitant]
     Route: 065
  5. FOLACIN [Concomitant]
     Route: 065
  6. BEHEPAN [Concomitant]
     Route: 065
  7. TRIOBE [Concomitant]
     Route: 065
  8. SIMVASTATIN [Concomitant]
     Route: 065
  9. ORUDIS [Concomitant]
     Route: 065

REACTIONS (1)
  - OSTEONECROSIS [None]
